FAERS Safety Report 4329921-5 (Version None)
Quarter: 2004Q1

REPORT INFORMATION
  Report Type: 
  Country: None (occurrence: None)
  Receive Date: 20040329
  Receipt Date: 20040315
  Transmission Date: 20041129
  Serious: Yes (Hospitalization)
  Sender: FDA-Public Use
  Company Number: JP-JNJFOC-20040300343

PATIENT
  Age: 76 Year
  Sex: Male

DRUGS (6)
  1. OFLOXACIN [Suspect]
     Dosage: 400 MG, ORAL
     Route: 048
     Dates: start: 20040104, end: 20040109
  2. OROKEN (CEFIXIME) TABLETS [Suspect]
     Dosage: 2 IU, ORAL
     Route: 048
     Dates: start: 20040104, end: 20040109
  3. LOVENOX [Concomitant]
  4. DAFLON (DIOSMIN) TABLETS [Concomitant]
  5. LIPANTHYL (FENOFIBRATE) TABLETS [Concomitant]
  6. ACETAMINOPHEN [Concomitant]

REACTIONS (5)
  - ALANINE AMINOTRANSFERASE INCREASED [None]
  - ASPARTATE AMINOTRANSFERASE INCREASED [None]
  - DIARRHOEA [None]
  - STREPTOCOCCAL BACTERAEMIA [None]
  - WHITE BLOOD CELL COUNT DECREASED [None]
